FAERS Safety Report 8867588 (Version 1)
Quarter: 2012Q4

REPORT INFORMATION
  Report Type: 
  Country: US (occurrence: US)
  Receive Date: 20121025
  Receipt Date: 20121025
  Transmission Date: 20130627
  Serious: No
  Sender: FDA-Public Use
  Company Number: US-AMGEN-USASP2012017534

PATIENT
  Age: 55 Year
  Sex: Male
  Weight: 79.37 kg

DRUGS (9)
  1. ENBREL [Suspect]
     Indication: PSORIATIC ARTHROPATHY
     Dosage: 50 mg, qwk
     Route: 058
  2. IBUPROFEN [Concomitant]
  3. FISH OIL [Concomitant]
  4. METHOTREXATE [Concomitant]
     Dosage: 2.5 mg, UNK
  5. SIMVASTATIN [Concomitant]
     Dosage: 20 mg, UNK
  6. VIAGRA [Concomitant]
     Dosage: 50 mg, UNK
  7. GLUCOSAMINE [Concomitant]
  8. MULTIVITAMIN                       /00097801/ [Concomitant]
  9. CALCIUM 600 + D [Concomitant]

REACTIONS (3)
  - Venomous sting [Recovered/Resolved]
  - Psoriatic arthropathy [Recovered/Resolved]
  - Infection [Recovered/Resolved]
